FAERS Safety Report 13878030 (Version 1)
Quarter: 2017Q3

REPORT INFORMATION
  Report Type: Spontaneous
  Country: US (occurrence: US)
  Receive Date: 20170817
  Receipt Date: 20170817
  Transmission Date: 20171127
  Serious: Yes (Other)
  Sender: FDA-Public Use
  Company Number: US-NAPPMUNDI-USA-2017-0140321

PATIENT
  Sex: Female

DRUGS (2)
  1. BUTRANS [Suspect]
     Active Substance: BUPRENORPHINE
     Indication: PRODUCT USED FOR UNKNOWN INDICATION
     Dosage: UNK MCG/HR, WEEKLY
     Route: 062
     Dates: start: 201707
  2. BUTRANS [Suspect]
     Active Substance: BUPRENORPHINE
     Dosage: UNK MCG/HR, WEEKLY
     Route: 062
     Dates: start: 201702

REACTIONS (4)
  - Parosmia [Not Recovered/Not Resolved]
  - Application site erythema [Unknown]
  - Dysgeusia [Not Recovered/Not Resolved]
  - Brain neoplasm [Not Recovered/Not Resolved]
